FAERS Safety Report 5250219-5 (Version None)
Quarter: 2007Q1

REPORT INFORMATION
  Report Type: 
  Country: None (occurrence: None)
  Receive Date: 20070228
  Receipt Date: 20060407
  Transmission Date: 20070707
  Serious: No
  Sender: FDA-Public Use
  Company Number: US-GLAXOSMITHKLINE-A0595343A

PATIENT
  Age: 63 Year
  Sex: Male

DRUGS (5)
  1. LAMICTAL [Suspect]
     Indication: EPILEPSY
     Dosage: 100MG PER DAY
     Route: 048
     Dates: start: 20060216
  2. DILANTIN [Concomitant]
  3. TOPROL-XL [Concomitant]
  4. PREVACID [Concomitant]
  5. ZOLOFT [Concomitant]

REACTIONS (3)
  - DIARRHOEA [None]
  - PHARYNGOLARYNGEAL PAIN [None]
  - PYREXIA [None]
